FAERS Safety Report 4964172-2 (Version None)
Quarter: 2006Q2

REPORT INFORMATION
  Report Type: 
  Country: None (occurrence: None)
  Receive Date: 20060406
  Receipt Date: 20060327
  Transmission Date: 20061013
  Serious: Yes (Hospitalization)
  Sender: FDA-Public Use
  Company Number: US-JNJFOC-20060306637

PATIENT
  Sex: Female
  Weight: 67.13 kg

DRUGS (11)
  1. REMICADE [Suspect]
     Route: 042
  2. REMICADE [Suspect]
     Indication: RHEUMATOID ARTHRITIS
     Route: 042
  3. FENTANYL [Concomitant]
     Indication: PAIN
     Route: 062
  4. AZATHIOPRINE [Concomitant]
     Indication: RHEUMATOID ARTHRITIS
  5. POTASSIUM CHLORIDE [Concomitant]
  6. ZOLOFT [Concomitant]
     Indication: DEPRESSION
  7. BACLOFEN [Concomitant]
     Indication: PAIN
  8. DILITAZEM [Concomitant]
  9. NEURONTIN [Concomitant]
     Indication: PAIN
  10. PREDNISONE [Concomitant]
     Indication: CROHN'S DISEASE
  11. IMURAN [Concomitant]
     Indication: CROHN'S DISEASE

REACTIONS (8)
  - ARTHRITIS [None]
  - DEHYDRATION [None]
  - HYPERHIDROSIS [None]
  - HYPOKALAEMIA [None]
  - INFLUENZA LIKE ILLNESS [None]
  - NAUSEA [None]
  - OEDEMA PERIPHERAL [None]
  - VOMITING [None]
